FAERS Safety Report 25279701 (Version 1)
Quarter: 2025Q2

REPORT INFORMATION
  Report Type: Spontaneous
  Country: CN (occurrence: CN)
  Receive Date: 20250507
  Receipt Date: 20250507
  Transmission Date: 20250717
  Serious: Yes (Other)
  Sender: PFIZER
  Company Number: CN-PFIZER INC-PV202500052866

PATIENT
  Age: 15 Year
  Sex: Male

DRUGS (3)
  1. CYTARABINE [Suspect]
     Active Substance: CYTARABINE
     Indication: Precursor T-lymphoblastic lymphoma/leukaemia stage IV
     Dosage: 30 MG, 1X/DAY
     Route: 037
     Dates: start: 20250327, end: 20250327
  2. DEXAMETHASONE SODIUM PHOSPHATE [Concomitant]
     Active Substance: DEXAMETHASONE SODIUM PHOSPHATE
     Indication: Precursor T-lymphoblastic lymphoma/leukaemia stage IV
     Dosage: 4 MG, 1X/DAY
     Route: 037
     Dates: start: 20250327, end: 20250327
  3. METHOTREXATE [Concomitant]
     Active Substance: METHOTREXATE
     Indication: Precursor T-lymphoblastic lymphoma/leukaemia stage IV
     Dosage: 15 MG, 1X/DAY
     Route: 037
     Dates: start: 20250327, end: 20250327

REACTIONS (7)
  - Muscular weakness [Recovered/Resolved with Sequelae]
  - Sensory disturbance [Recovered/Resolved with Sequelae]
  - Paralysis [Recovering/Resolving]
  - Pain in extremity [Recovering/Resolving]
  - Pyrexia [Unknown]
  - Vomiting [Unknown]
  - Musculoskeletal disorder [Unknown]

NARRATIVE: CASE EVENT DATE: 20250327
